FAERS Safety Report 4893115-5 (Version None)
Quarter: 2005Q4

REPORT INFORMATION
  Report Type: 
  Country: None (occurrence: None)
  Receive Date: 20051223
  Receipt Date: 20050920
  Transmission Date: 20060501
  Serious: Yes (Hospitalization)
  Sender: FDA-Public Use
  Company Number: 217922

PATIENT
  Age: 45 Year
  Sex: Male
  Weight: 108.8 kg

DRUGS (1)
  1. AVASTIN [Suspect]
     Indication: COLON CANCER
     Dosage: 560 MG, Q2W, INTRAVENOUS
     Route: 042
     Dates: start: 20050802, end: 20050830

REACTIONS (1)
  - SUBCLAVIAN VEIN THROMBOSIS [None]
